FAERS Safety Report 25127079 (Version 3)
Quarter: 2025Q2

REPORT INFORMATION
  Report Type: Report from Study
  Country: US (occurrence: US)
  Receive Date: 20250327
  Receipt Date: 20250626
  Transmission Date: 20250716
  Serious: No
  Sender: SUNOVION
  Company Number: US-SUMITOMO PHARMA SWITZERLAND GMBH-2025SPA002663

PATIENT

DRUGS (1)
  1. ORGOVYX [Suspect]
     Active Substance: RELUGOLIX
     Indication: Prostate cancer
     Dosage: 120 MG, QD
     Route: 048
     Dates: start: 20250213

REACTIONS (10)
  - Presyncope [Unknown]
  - Enuresis [Unknown]
  - Pollakiuria [Unknown]
  - Confusional state [Unknown]
  - Feeling abnormal [Unknown]
  - Polydipsia [Unknown]
  - Night sweats [Unknown]
  - Dizziness [Unknown]
  - Product dose omission issue [Unknown]
  - Incorrect dose administered [Unknown]
